FAERS Safety Report 23669154 (Version 1)
Quarter: 2024Q1

REPORT INFORMATION
  Report Type: Report from Study
  Country: US (occurrence: US)
  Receive Date: 20240325
  Receipt Date: 20240325
  Transmission Date: 20240410
  Serious: Yes (Death)
  Sender: FDA-Public Use
  Company Number: US-JNJFOC-20240358644

PATIENT
  Age: 91 Year
  Sex: Male

DRUGS (18)
  1. RIVAROXABAN [Suspect]
     Active Substance: RIVAROXABAN
     Indication: Atrial fibrillation
     Route: 048
  2. RIVAROXABAN [Suspect]
     Active Substance: RIVAROXABAN
     Indication: Cerebrovascular accident prophylaxis
  3. BRIMONIDINE [Concomitant]
     Active Substance: BRIMONIDINE TARTRATE
  4. BROVANA [Concomitant]
     Active Substance: ARFORMOTEROL TARTRATE
  5. BUMEX [Concomitant]
     Active Substance: BUMETANIDE
  6. DORZOLAMIDE [Concomitant]
     Active Substance: DORZOLAMIDE
  7. FINASTERIDE [Concomitant]
     Active Substance: FINASTERIDE
  8. IPRATROPIUM [Concomitant]
     Active Substance: IPRATROPIUM
  9. POTASSIUM CHLORIDE [Concomitant]
     Active Substance: POTASSIUM CHLORIDE
  10. LATANOPROST [Concomitant]
     Active Substance: LATANOPROST
  11. METOPROLOL SUCCINATE [Concomitant]
     Active Substance: METOPROLOL SUCCINATE
  12. MINOXIDIL [Concomitant]
     Active Substance: MINOXIDIL
  13. VITAMINS [Concomitant]
     Active Substance: VITAMINS
  14. VITAMIN B COMPLEX [Concomitant]
     Active Substance: CYANOCOBALAMIN\DEXPANTHENOL\NIACINAMIDE\PYRIDOXINE HYDROCHLORIDE\RIBOFLAVIN 5^-PHOSPHATE SODIUM\THIA
  15. TAMSULOSIN [Concomitant]
     Active Substance: TAMSULOSIN
  16. TEMAZEPAM [Concomitant]
     Active Substance: TEMAZEPAM
  17. TRAZODONE [Concomitant]
     Active Substance: TRAZODONE HYDROCHLORIDE
  18. ASCORBIC ACID [Concomitant]
     Active Substance: ASCORBIC ACID

REACTIONS (1)
  - Death [Fatal]
